FAERS Safety Report 9547720 (Version 1)
Quarter: 2013Q2

REPORT INFORMATION
  Report Type: Spontaneous
  Country: US (occurrence: None)
  Receive Date: 20130606
  Receipt Date: 20130606
  Transmission Date: 20140414
  Serious: No
  Sender: FDA-Public Use
  Company Number: 1302USA009249

PATIENT
  Age: 88 Year
  Sex: Female

DRUGS (8)
  1. ZIOPTAN (TAFLUPROST) EYE DROPS, SOLUTION [Suspect]
     Indication: OPEN ANGLE GLAUCOMA
     Dosage: TAKEN ONE DROP IN EACH EYE AT BEDTIME, OPHTHALMIC
     Dates: start: 201302
  2. AMLODIPINE (AMLODIPINE) [Concomitant]
  3. ORA-LUTIN (ETHISTERONE) [Concomitant]
  4. FLAXSEED (FLAXSEED) [Concomitant]
  5. VITAMINS (UNSPECIFIED) (VITAMINS (UNSPECIFIED)) [Concomitant]
  6. OMEPRAZOLE (OMEPRAZOLE) [Concomitant]
  7. ASCORBIC ACID (ASCORBIC ACID) [Concomitant]
  8. ASPIRIN (ASPIRIN) [Concomitant]

REACTIONS (9)
  - Dyspnoea [None]
  - Chest discomfort [None]
  - Lip swelling [None]
  - Vision blurred [None]
  - Nasopharyngitis [None]
  - Urinary tract infection [None]
  - Cough [None]
  - Dry eye [None]
  - Therapeutic response delayed [None]
